FAERS Safety Report 7907496-9 (Version None)
Quarter: 2011Q4

REPORT INFORMATION
  Report Type: 
  Country: None (occurrence: None)
  Receive Date: 20111110
  Receipt Date: 20111108
  Transmission Date: 20120403
  Serious: Yes (Life-Threatening, Hospitalization)
  Sender: FDA-Public Use
  Company Number: AU-B.I. PHARMACEUTICALS,INC./RIDGEFIELD-2011-AU-01999AU

PATIENT
  Sex: Male

DRUGS (16)
  1. CRESTOR [Concomitant]
     Dosage: 10 MG
     Route: 048
  2. SERETIDE ACCUHALER [Concomitant]
     Dosage: 250/5
     Route: 055
  3. PROCHLORPERAZINE [Concomitant]
     Dosage: 5 MG
     Route: 048
  4. BICOR [Concomitant]
     Dosage: 10 MG
     Route: 048
  5. FUROSEMIDE [Concomitant]
     Dosage: 40 MG
     Route: 048
  6. SPIRIVA [Concomitant]
     Dosage: 18 MCG
     Route: 055
  7. NITROGLYCERIN [Concomitant]
     Route: 060
  8. ACETAMINOPHEN W/ CODEINE [Concomitant]
     Dosage: 500MG/30MG
     Route: 048
  9. PRADAXA [Suspect]
     Indication: ATRIAL FIBRILLATION
     Dosage: 220 MG
     Dates: start: 20110721, end: 20110811
  10. NITROLINGUAL PUMPSPRAY [Concomitant]
     Indication: ANGINA PECTORIS
     Dosage: PUMPSPRAY
     Route: 060
  11. PROGOUT [Concomitant]
     Dosage: 100 MG
     Route: 048
  12. QUINACT [Concomitant]
     Dosage: 100 MG
     Route: 048
  13. TEARS NATURALE [Concomitant]
     Dosage: 0.3%/0.1%
  14. TRANSDERM-NITRO [Concomitant]
     Dosage: 50 MG
  15. VITAMIN D [Concomitant]
     Dosage: 50 MCG
     Route: 048
  16. PANADOL OSTEO [Concomitant]
     Route: 048

REACTIONS (5)
  - ACUTE MYOCARDIAL INFARCTION [None]
  - DUODENITIS [None]
  - PNEUMONIA [None]
  - GOUT [None]
  - MELAENA [None]
